FAERS Safety Report 6888308-1 (Version None)
Quarter: 2010Q3

REPORT INFORMATION
  Report Type: 
  Country: None (occurrence: None)
  Receive Date: 20100730
  Receipt Date: 20100723
  Transmission Date: 20110219
  Serious: Yes (Congenital Anomaly)
  Sender: FDA-Public Use
  Company Number: AR-BRISTOL-MYERS SQUIBB COMPANY-15212707

PATIENT
  Sex: Male

DRUGS (9)
  1. SUSTIVA [Suspect]
     Route: 064
     Dates: start: 20021205, end: 20050111
  2. ESTRADIOL [Suspect]
     Route: 064
  3. FERROUS SULFATE [Suspect]
     Route: 064
  4. PARACETAMOL [Suspect]
     Route: 064
  5. VIRACEPT [Suspect]
     Dosage: COURSE 1
     Route: 064
     Dates: start: 20050516, end: 20051028
  6. VIRAMUNE [Suspect]
     Dosage: COURSE 1
     Route: 064
     Dates: start: 20050415, end: 20050429
  7. COMBIVIR [Suspect]
     Dosage: 05DEC2002-11JAN2005 15APR2005-29APR2005 16MAY2005-28OCT2005.
     Route: 064
     Dates: start: 20021205, end: 20051028
  8. FOLIC ACID [Suspect]
     Route: 064
  9. DIPHENHYDRAMINE [Suspect]
     Route: 064

REACTIONS (1)
  - HORNER'S SYNDROME [None]
